FAERS Safety Report 5958236-4 (Version None)
Quarter: 2008Q4

REPORT INFORMATION
  Report Type: 
  Country: None (occurrence: None)
  Receive Date: 20081119
  Receipt Date: 20081107
  Transmission Date: 20090506
  Serious: Yes (Hospitalization, Other)
  Sender: FDA-Public Use
  Company Number: US-BIOGENIDEC-2008BI017029

PATIENT
  Age: 51 Year
  Sex: Female

DRUGS (8)
  1. TYSABRI [Suspect]
     Indication: MULTIPLE SCLEROSIS
     Route: 042
     Dates: start: 20080421
  2. LEXAPRO [Concomitant]
     Indication: DEPRESSION
     Route: 048
  3. TEGRETOL [Concomitant]
     Indication: PAIN
     Route: 048
  4. CLONAZEPAM [Concomitant]
     Indication: MUSCLE SPASTICITY
     Route: 048
  5. AMANTADINE HCL [Concomitant]
     Indication: FATIGUE
     Route: 048
  6. MIRAPEX [Concomitant]
     Route: 048
  7. ADVAIR DISKUS 100/50 [Concomitant]
  8. EXCEDRIN [Concomitant]

REACTIONS (1)
  - VESTIBULAR NEURONITIS [None]
